FAERS Safety Report 14820755 (Version 3)
Quarter: 2018Q2

REPORT INFORMATION
  Report Type: Spontaneous
  Country: CA (occurrence: CA)
  Receive Date: 20180427
  Receipt Date: 20180525
  Transmission Date: 20180711
  Serious: Yes (Other)
  Sender: FDA-Public Use
  Company Number: CA-CELLTRION INC.-2018CA019129

PATIENT

DRUGS (10)
  1. INFLECTRA [Suspect]
     Active Substance: INFLIXIMAB-DYYB
     Dosage: 600 MG (10MG/KG) X 1 DOSE
     Route: 042
     Dates: start: 20180430, end: 20180430
  2. PREDNISONE. [Concomitant]
     Active Substance: PREDNISONE
     Dosage: 30 MG, DAILY FOR A WEEK WITH A TAPER OVER A MONTH
     Route: 048
  3. INFLECTRA [Suspect]
     Active Substance: INFLIXIMAB-DYYB
     Dosage: 300 MG CYCLIC, (EVERY 0, 2, 6 WEEKS THEN EVERY 8 WEEKS
     Route: 042
     Dates: start: 20180312, end: 20180312
  4. PREDNISONE. [Concomitant]
     Active Substance: PREDNISONE
     Dosage: 50 MG, DAILY
     Route: 048
  5. MESALAMINE. [Concomitant]
     Active Substance: MESALAMINE
     Dosage: 1600 MG, BID
     Route: 048
  6. IRON [Concomitant]
     Active Substance: IRON
     Dosage: UNK
  7. INFLECTRA [Suspect]
     Active Substance: INFLIXIMAB-DYYB
     Dosage: 600 MG (10MG/KG) X 1 DOSE
     Route: 042
     Dates: start: 20180427, end: 20180427
  8. INFLECTRA [Suspect]
     Active Substance: INFLIXIMAB-DYYB
     Indication: COLITIS ULCERATIVE
     Dosage: 300 MG, CYCLIC
     Route: 042
     Dates: start: 20180126
  9. INFLECTRA [Suspect]
     Active Substance: INFLIXIMAB-DYYB
     Dosage: 10 MG/KG (600MG), SINGLE (EXTRA DOSE)
     Route: 042
     Dates: start: 20180419
  10. INFLECTRA [Suspect]
     Active Substance: INFLIXIMAB-DYYB
     Dosage: 300 MG (5 MG/KG) Q (EVERY) 4 WEEKS)
     Route: 042

REACTIONS (11)
  - Chest discomfort [Recovered/Resolved]
  - Product use issue [Recovered/Resolved]
  - C-reactive protein increased [Not Recovered/Not Resolved]
  - Haematochezia [Recovered/Resolved]
  - Drug effect incomplete [Unknown]
  - Flushing [Recovered/Resolved]
  - Weight increased [Unknown]
  - Disease recurrence [Recovered/Resolved]
  - Dyspnoea [Recovered/Resolved]
  - Infusion related reaction [Unknown]
  - Loss of personal independence in daily activities [Unknown]

NARRATIVE: CASE EVENT DATE: 20180427
